FAERS Safety Report 13404885 (Version 1)
Quarter: 2017Q2

REPORT INFORMATION
  Report Type: Report from Study
  Country: None (occurrence: DE)
  Receive Date: 20170405
  Receipt Date: 20170405
  Transmission Date: 20170830
  Serious: Yes (Other)
  Sender: FDA-Public Use
  Company Number: DE-ABBVIE-12P-062-1024485-00

PATIENT
  Age: 46 Year
  Sex: Male

DRUGS (2)
  1. HYDROCORTISONE. [Concomitant]
     Active Substance: HYDROCORTISONE
     Indication: PRODUCT USED FOR UNKNOWN INDICATION
     Dosage: 20-0-10 MG
     Dates: start: 201208
  2. HUMIRA [Suspect]
     Active Substance: ADALIMUMAB
     Indication: PSORIASIS
     Route: 058
     Dates: start: 200811, end: 20120730

REACTIONS (11)
  - Bronchitis [Recovered/Resolved]
  - Flatulence [Recovered/Resolved]
  - Emphysema [Not Recovered/Not Resolved]
  - Renal cyst [Not Recovered/Not Resolved]
  - Gynaecomastia [Not Recovered/Not Resolved]
  - Paronychia [Recovered/Resolved]
  - Drug level decreased [Not Recovered/Not Resolved]
  - Leukocytosis [Recovered/Resolved]
  - Mouth ulceration [Not Recovered/Not Resolved]
  - Oesophageal candidiasis [Recovered/Resolved]
  - Adrenal insufficiency [Not Recovered/Not Resolved]

NARRATIVE: CASE EVENT DATE: 20120306
